FAERS Safety Report 14723113 (Version 1)
Quarter: 2018Q2

REPORT INFORMATION
  Report Type: Spontaneous
  Country: FR (occurrence: FR)
  Receive Date: 20180405
  Receipt Date: 20180405
  Transmission Date: 20180711
  Serious: Yes (Other)
  Sender: FDA-Public Use
  Company Number: FR-TEVA-2018-FR-877678

PATIENT
  Age: 72 Year
  Sex: Female

DRUGS (3)
  1. TERCIAN [Concomitant]
     Active Substance: CYAMEMAZINE
  2. LEXOMIL [Concomitant]
     Active Substance: BROMAZEPAM
  3. RISPERIDONE TEVA SANTE 1 MG [Suspect]
     Active Substance: RISPERIDONE
     Indication: SCHIZOPHRENIA
     Dosage: 2 DOSAGE FORMS DAILY;
     Dates: start: 201712

REACTIONS (3)
  - Limb discomfort [Unknown]
  - Anxiety [Unknown]
  - Adverse event [Unknown]

NARRATIVE: CASE EVENT DATE: 201803
